FAERS Safety Report 7579986-2 (Version None)
Quarter: 2011Q2

REPORT INFORMATION
  Report Type: 
  Country: None (occurrence: None)
  Receive Date: 20110622
  Receipt Date: 20110607
  Transmission Date: 20111010
  Serious: Yes (Other)
  Sender: FDA-Public Use
  Company Number: IDA-00555

PATIENT
  Age: 52 Year
  Sex: Male

DRUGS (6)
  1. THIORIDAZINE HCL [Concomitant]
  2. RIVOTRIL (CLONAZEPAM) [Concomitant]
  3. PROPRANOLOL [Suspect]
     Indication: ARRHYTHMIA
     Dosage: ORAL
     Route: 048
     Dates: start: 20050101, end: 20060101
  4. METOPROLOL SUCCINATE [Suspect]
     Indication: ARRHYTHMIA
     Dosage: 50 MG DAILY ORAL FORMULATION: TABLET CONTR REL
     Route: 048
     Dates: start: 20060101
  5. AMIODARONE HYDROCHLORIDE [Suspect]
     Indication: ARRHYTHMIA
     Dosage: ORAL
     Route: 048
     Dates: start: 20050101, end: 20060101
  6. PROPAFENONE HYDROCHLORIDE [Suspect]
     Indication: ARRHYTHMIA
     Dosage: DOSE TEXT: 1 1/2 TABLET/DAY ORAL FORMULATION: TABLET
     Route: 048
     Dates: start: 20060101

REACTIONS (4)
  - DRUG INEFFECTIVE [None]
  - ARRHYTHMIA [None]
  - SOMNOLENCE [None]
  - BLOOD PRESSURE INADEQUATELY CONTROLLED [None]
